FAERS Safety Report 9848282 (Version 1)
Quarter: 2014Q1

REPORT INFORMATION
  Report Type: Spontaneous
  Country: US (occurrence: None)
  Receive Date: 20140123
  Receipt Date: 20140123
  Transmission Date: 20141002
  Serious: Yes (Other)
  Sender: FDA-Public Use
  Company Number: None

PATIENT
  Age: 72 Year
  Sex: Female

DRUGS (1)
  1. PROCRIT [Suspect]
     Indication: NEPHROGENIC ANAEMIA
     Dosage: 10,000 UNITS  QW  SQ
     Route: 058
     Dates: start: 201310, end: 20131218

REACTIONS (4)
  - Insomnia [None]
  - Pruritus [None]
  - Urticaria [None]
  - Drug hypersensitivity [None]
